FAERS Safety Report 4393855-0 (Version None)
Quarter: 2004Q3

REPORT INFORMATION
  Report Type: 
  Country: None (occurrence: None)
  Receive Date: 20040702
  Receipt Date: 20040621
  Transmission Date: 20050211
  Serious: Yes (Other)
  Sender: FDA-Public Use
  Company Number: 2004-06-0491

PATIENT
  Age: 24 Year
  Sex: Female
  Weight: 56.6996 kg

DRUGS (1)
  1. CLARITIN HIVES RELIEF [Suspect]
     Indication: URTICARIA
     Dosage: 1 TABLET ORAL
     Route: 048
     Dates: start: 20040529, end: 20040529

REACTIONS (12)
  - ANXIETY [None]
  - BRUXISM [None]
  - CONDITION AGGRAVATED [None]
  - DISEASE RECURRENCE [None]
  - DYSPNOEA [None]
  - HEARING IMPAIRED [None]
  - HYPERSENSITIVITY [None]
  - INSOMNIA [None]
  - PARANOIA [None]
  - SWOLLEN TONGUE [None]
  - TACHYCARDIA [None]
  - URTICARIA [None]
